FAERS Safety Report 9082029 (Version 1)
Quarter: 2013Q1

REPORT INFORMATION
  Report Type: Report from Study
  Country: US (occurrence: US)
  Receive Date: 20130130
  Receipt Date: 20130130
  Transmission Date: 20140127
  Serious: No
  Sender: FDA-Public Use
  Company Number: US-ABBOTT-12P-163-0979743-00

PATIENT
  Age: 52 Year
  Sex: Female

DRUGS (4)
  1. HUMIRA [Suspect]
     Indication: CROHN^S DISEASE
     Route: 058
     Dates: start: 20120815
  2. PREVACID [Concomitant]
     Indication: GASTRIC DISORDER
  3. MOTRIN [Concomitant]
     Indication: ARTHRITIS
     Dosage: EVERY 6 HOURS AS NEEDED
  4. AZATHIOPRINE [Concomitant]
     Indication: ARTHRITIS

REACTIONS (1)
  - Somnolence [Not Recovered/Not Resolved]
